APPROVED DRUG PRODUCT: HYDROMORPHONE HYDROCHLORIDE
Active Ingredient: HYDROMORPHONE HYDROCHLORIDE
Strength: 4MG
Dosage Form/Route: TABLET;ORAL
Application: A077311 | Product #002
Applicant: NESHER PHARMACEUTICALS USA LLC
Approved: Nov 9, 2005 | RLD: No | RS: No | Type: DISCN